FAERS Safety Report 5604495-7 (Version None)
Quarter: 2008Q1

REPORT INFORMATION
  Report Type: 
  Country: None (occurrence: None)
  Receive Date: 20080128
  Receipt Date: 20080114
  Transmission Date: 20080703
  Serious: Yes (Hospitalization)
  Sender: FDA-Public Use
  Company Number: DE-ROCHE-537972

PATIENT
  Age: 60 Year
  Sex: Female

DRUGS (1)
  1. CEFTRIAXONE SODIUM [Suspect]
     Dosage: DRUG NAME: CEFTRIAXONE. TAKEN AFTER DISSOLVING IN 100 ML OF 0.09% SODIUM CHLORIDE SOLUTION.
     Route: 042
     Dates: start: 20071126, end: 20071215

REACTIONS (5)
  - ABDOMINAL PAIN [None]
  - BACK PAIN [None]
  - BILIARY COLIC [None]
  - CHOLELITHIASIS [None]
  - DIARRHOEA [None]
